FAERS Safety Report 18637405 (Version 1)
Quarter: 2020Q4

REPORT INFORMATION
  Report Type: Report from Study
  Country: US (occurrence: US)
  Receive Date: 20201218
  Receipt Date: 20201218
  Transmission Date: 20210114
  Serious: No
  Sender: FDA-Public Use
  Company Number: US-REGENERON PHARMACEUTICALS, INC.-2020-73226

PATIENT

DRUGS (2)
  1. EYLEA [Suspect]
     Active Substance: AFLIBERCEPT
     Indication: PATHOLOGIC MYOPIA
     Dosage: EVERY 6 TO 8 WEEKS, LEFT EYE
     Route: 031
     Dates: start: 20190418
  2. EYLEA [Suspect]
     Active Substance: AFLIBERCEPT
     Indication: CHOROIDAL NEOVASCULARISATION
     Dosage: EVERY 6 TO 8 WEEKS, LEFT EYE, LAST DOSE PRIOR TO EVENT
     Route: 031
     Dates: start: 20200622, end: 20200622

REACTIONS (2)
  - Product dose omission issue [Unknown]
  - Off label use [Unknown]
